FAERS Safety Report 8233227-1 (Version None)
Quarter: 2012Q1

REPORT INFORMATION
  Report Type: 
  Country: None (occurrence: None)
  Receive Date: 20120326
  Receipt Date: 20120320
  Transmission Date: 20120608
  Serious: No
  Sender: FDA-Public Use
  Company Number: US-PFIZER INC-2012061333

PATIENT
  Sex: Male
  Weight: 49.887 kg

DRUGS (1)
  1. COLESTID [Suspect]
     Indication: CROHN'S DISEASE
     Dosage: UNK
     Route: 048
     Dates: start: 20030101

REACTIONS (1)
  - DRUG INEFFECTIVE [None]
